FAERS Safety Report 5123165-5 (Version None)
Quarter: 2006Q4

REPORT INFORMATION
  Report Type: 
  Country: None (occurrence: None)
  Receive Date: 20061005
  Receipt Date: 20060914
  Transmission Date: 20070319
  Serious: Yes (Other)
  Sender: FDA-Public Use
  Company Number: US200609003130

PATIENT
  Age: 75 Year
  Sex: Female

DRUGS (6)
  1. TERIPARATIDE  (TERIPARATIDE ) PEN , DISPOSABLE [Suspect]
     Indication: OSTEOPOROSIS
     Dosage: UNK, UNK, SUBCUTANEOUS
     Route: 058
     Dates: start: 20031001, end: 20060701
  2. FORTEO [Concomitant]
  3. FOSAMAX   /ITA/(ALENDRONATE SODIUM) [Concomitant]
  4. ATORVASTATIN 9ATORVASTATIN0 [Concomitant]
  5. CALCIUM (CALCIUM) [Concomitant]
  6. MULTIVITAMIN [Concomitant]

REACTIONS (2)
  - GAMMOPATHY [None]
  - MULTIPLE MYELOMA [None]
